FAERS Safety Report 15991435 (Version 3)
Quarter: 2021Q4

REPORT INFORMATION
  Report Type: Spontaneous
  Country: CA (occurrence: None)
  Receive Date: 20190221
  Receipt Date: 20211215
  Transmission Date: 20220303
  Serious: Yes (Other)
  Sender: FDA-Public Use
  Company Number: 2019SE27482

PATIENT
  Age: 61 Year
  Sex: Female

DRUGS (1)
  1. SYMBICORT [Suspect]
     Active Substance: BUDESONIDE\FORMOTEROL FUMARATE DIHYDRATE
     Indication: Product used for unknown indication
     Dosage: 200 MG, 2 INHALATIONS TWO TIMES A DAY
     Route: 055

REACTIONS (4)
  - Pneumonia [Unknown]
  - Myocardial infarction [Unknown]
  - Paralysis [Unknown]
  - Heart rate increased [Unknown]
